FAERS Safety Report 24243946 (Version 7)
Quarter: 2025Q1

REPORT INFORMATION
  Report Type: Report from Study
  Country: MX (occurrence: MX)
  Receive Date: 20240823
  Receipt Date: 20250314
  Transmission Date: 20250409
  Serious: Yes (Death, Hospitalization, Other)
  Sender: TAKEDA
  Company Number: MX-TAKEDA-2024TUS083900

PATIENT
  Age: 35 Year
  Sex: Female
  Weight: 87 kg

DRUGS (2)
  1. PONATINIB [Suspect]
     Active Substance: PONATINIB
     Indication: Philadelphia positive acute lymphocytic leukaemia
     Dosage: 45 MILLIGRAM, QD
     Dates: start: 20231201, end: 20240826
  2. PONATINIB [Suspect]
     Active Substance: PONATINIB
     Dosage: 45 MILLIGRAM, QD
     Dates: start: 20240909

REACTIONS (16)
  - Sepsis [Fatal]
  - Pneumonia [Fatal]
  - Multiple organ dysfunction syndrome [Fatal]
  - Acute lymphocytic leukaemia [Fatal]
  - Vascular device infection [Unknown]
  - Acute lymphocytic leukaemia recurrent [Recovering/Resolving]
  - Splenomegaly [Recovered/Resolved]
  - White blood cell count increased [Recovering/Resolving]
  - Cardiac disorder [Not Recovered/Not Resolved]
  - Pyrexia [Not Recovered/Not Resolved]
  - Malaise [Not Recovered/Not Resolved]
  - Skin fissures [Unknown]
  - Skin reaction [Unknown]
  - Skin irritation [Unknown]
  - Dry skin [Unknown]
  - Pain of skin [Unknown]

NARRATIVE: CASE EVENT DATE: 20240805
